FAERS Safety Report 7184739-3 (Version None)
Quarter: 2010Q4

REPORT INFORMATION
  Report Type: 
  Country: None (occurrence: None)
  Receive Date: 20101222
  Receipt Date: 20100525
  Transmission Date: 20110411
  Serious: No
  Sender: FDA-Public Use
  Company Number: US-AMGEN-TCS414178

PATIENT

DRUGS (1)
  1. ENBREL [Suspect]
     Indication: PSORIATIC ARTHROPATHY
     Dosage: 50 MG, Q2WK
     Route: 058

REACTIONS (4)
  - ARTHRALGIA [None]
  - INJECTION SITE INJURY [None]
  - INJECTION SITE PAIN [None]
  - OEDEMA PERIPHERAL [None]
